FAERS Safety Report 13147285 (Version 2)
Quarter: 2017Q1

REPORT INFORMATION
  Report Type: Report from Study
  Country: US (occurrence: US)
  Receive Date: 20170124
  Receipt Date: 20170124
  Transmission Date: 20170428
  Serious: No
  Sender: FDA-Public Use
  Company Number: US-AMGEN-USASL2016162791

PATIENT
  Sex: Female

DRUGS (1)
  1. REPATHA [Suspect]
     Active Substance: EVOLOCUMAB
     Indication: HYPERCHOLESTEROLAEMIA
     Dosage: 140 MG, Q2WK
     Route: 065

REACTIONS (13)
  - Dry mouth [Unknown]
  - Musculoskeletal pain [Unknown]
  - Neck pain [Unknown]
  - Injection site pain [Unknown]
  - Lip pruritus [Unknown]
  - Malaise [Unknown]
  - Headache [Unknown]
  - Nausea [Unknown]
  - Injection site bruising [Unknown]
  - Abdominal discomfort [Unknown]
  - Rhinorrhoea [Unknown]
  - Asthenia [Unknown]
  - Oral pruritus [Unknown]
